FAERS Safety Report 10056005 (Version 1)
Quarter: 2014Q2

REPORT INFORMATION
  Report Type: Spontaneous
  Country: BR (occurrence: BR)
  Receive Date: 20140403
  Receipt Date: 20140403
  Transmission Date: 20141212
  Serious: Yes (Other)
  Sender: FDA-Public Use
  Company Number: BR-BAYER-2014-046221

PATIENT
  Age: 32 Year
  Sex: Female

DRUGS (5)
  1. ASPIRINA [Suspect]
     Indication: PYREXIA
     Dosage: UNK
     Route: 048
     Dates: start: 199207
  2. ASPIRINA [Suspect]
     Indication: RHINITIS
  3. ASPIRINA [Suspect]
     Indication: COUGH
  4. COMBIRON [Concomitant]
     Dosage: UNK
     Route: 048
     Dates: start: 1992
  5. MATERNA 1.60 [Concomitant]
     Dosage: UNK
     Route: 048
     Dates: start: 1992

REACTIONS (2)
  - Foetal malposition [None]
  - Maternal exposure during pregnancy [None]
